FAERS Safety Report 5122340-3 (Version None)
Quarter: 2006Q4

REPORT INFORMATION
  Report Type: 
  Country: None (occurrence: None)
  Receive Date: 20061004
  Receipt Date: 20060927
  Transmission Date: 20070319
  Serious: Yes (Hospitalization)
  Sender: FDA-Public Use
  Company Number: 2006US001476

PATIENT
  Age: 53 Year
  Sex: Male
  Weight: 108.8 kg

DRUGS (10)
  1. PROGRAF [Suspect]
     Indication: RENAL TRANSPLANT
     Dosage: 6 MG BID ORAL
     Route: 048
     Dates: start: 20051001, end: 20060601
  2. CELLCEPT [Concomitant]
  3. PREDNISONE TAB [Concomitant]
  4. BACTRIM (TRIMETHOPRIM) [Concomitant]
  5. VALCYTE [Concomitant]
  6. PRILOSEC [Concomitant]
  7. LOPRESSOR [Concomitant]
  8. COUMADIN [Concomitant]
  9. LANTUS [Concomitant]
  10. NOVOLOG [Concomitant]

REACTIONS (2)
  - DYSSTASIA [None]
  - GUILLAIN-BARRE SYNDROME [None]
